FAERS Safety Report 4455683-7 (Version None)
Quarter: 2004Q3

REPORT INFORMATION
  Report Type: 
  Country: None (occurrence: None)
  Receive Date: 20040917
  Receipt Date: 20040908
  Transmission Date: 20050211
  Serious: Yes (Disabling, Other)
  Sender: FDA-Public Use
  Company Number: 2004232950GB

PATIENT
  Age: 53 Year
  Sex: Female
  Weight: 70 kg

DRUGS (2)
  1. TOLTERODINE TARTRATE [Suspect]
     Indication: URGE INCONTINENCE
     Dosage: 4 MG, ORAL
     Route: 048
     Dates: start: 20040630, end: 20040808
  2. ESTRADERM [Concomitant]

REACTIONS (2)
  - MUSCLE CONTRACTIONS INVOLUNTARY [None]
  - MUSCLE SPASMS [None]
